FAERS Safety Report 7799339-1 (Version None)
Quarter: 2011Q4

REPORT INFORMATION
  Report Type: 
  Country: None (occurrence: None)
  Receive Date: 20111006
  Receipt Date: 20111004
  Transmission Date: 20120403
  Serious: Yes (Other)
  Sender: FDA-Public Use
  Company Number: GXKR2011DE02966

PATIENT

DRUGS (4)
  1. FOLIC ACID [Concomitant]
     Indication: PROPHYLAXIS OF NEURAL TUBE DEFECT
     Dosage: 0.8 MG/DAY
     Route: 048
  2. ESCITALOPRAM [Suspect]
     Indication: DEPRESSION
     Dosage: 5 MG/DAY
     Route: 048
  3. TRAZODONE HYDROCHLORIDE [Suspect]
     Indication: SLEEP DISORDER
     Dosage: 12.5 MG/DAY
     Route: 048
  4. LEVOTHYROXINE SODIUM [Concomitant]
     Indication: AUTOIMMUNE THYROIDITIS
     Dosage: 137.5 MG/DAY
     Route: 048

REACTIONS (2)
  - MATERNAL EXPOSURE DURING PREGNANCY [None]
  - ABORTION MISSED [None]
